FAERS Safety Report 25101490 (Version 1)
Quarter: 2025Q1

REPORT INFORMATION
  Report Type: Spontaneous
  Country: NO (occurrence: NO)
  Receive Date: 20250320
  Receipt Date: 20250320
  Transmission Date: 20250408
  Serious: Yes (Other)
  Sender: MYLAN
  Company Number: None

PATIENT
  Age: 23 Year
  Sex: Female

DRUGS (2)
  1. NEURONTIN [Suspect]
     Active Substance: GABAPENTIN
     Indication: Pain
     Dosage: 900 MILLIGRAM, Q8H
     Dates: start: 202502
  2. NEURONTIN [Suspect]
     Active Substance: GABAPENTIN
     Indication: Carpal tunnel syndrome

REACTIONS (3)
  - Impaired driving ability [Not Recovered/Not Resolved]
  - Somnolence [Not Recovered/Not Resolved]
  - Rash pruritic [Not Recovered/Not Resolved]

NARRATIVE: CASE EVENT DATE: 20250201
